FAERS Safety Report 4879231-2 (Version None)
Quarter: 2006Q1

REPORT INFORMATION
  Report Type: 
  Country: None (occurrence: None)
  Receive Date: 20060112
  Receipt Date: 20060105
  Transmission Date: 20060701
  Serious: Yes (Hospitalization)
  Sender: FDA-Public Use
  Company Number: GB-ABBOTT-06P-167-0321317-00

PATIENT
  Age: 35 Year
  Sex: Female

DRUGS (2)
  1. ERYTHROMYCIN [Suspect]
     Indication: CELLULITIS
     Route: 048
     Dates: start: 20051126, end: 20051128
  2. IBUPROFEN [Suspect]
     Indication: PAIN IN EXTREMITY
     Route: 048

REACTIONS (2)
  - ANGIONEUROTIC OEDEMA [None]
  - OEDEMA PERIPHERAL [None]
